FAERS Safety Report 15673462 (Version 1)
Quarter: 2018Q4

REPORT INFORMATION
  Report Type: Spontaneous
  Country: FR (occurrence: FR)
  Receive Date: 20181129
  Receipt Date: 20181129
  Transmission Date: 20190205
  Serious: Yes (Hospitalization)
  Sender: FDA-Public Use
  Company Number: FR-ALLERGAN-1855301US

PATIENT
  Age: 77 Year
  Sex: Female

DRUGS (7)
  1. ESCITALOPRAM OXALATE - BP [Suspect]
     Active Substance: ESCITALOPRAM OXALATE
     Indication: ANTIDEPRESSANT THERAPY
     Dosage: 20 (UNITS UNSPECIFIED)
     Route: 065
  2. RISPERDAL [Concomitant]
     Active Substance: RISPERIDONE
     Route: 065
  3. SERESTA [Concomitant]
     Active Substance: OXAZEPAM
     Indication: ANXIOLYTIC THERAPY
     Route: 065
  4. MIANSERIN [Concomitant]
     Active Substance: MIANSERIN
     Indication: ANTIDEPRESSANT THERAPY
     Route: 065
  5. TRAMADOL. [Concomitant]
     Active Substance: TRAMADOL
     Indication: BACK PAIN
     Route: 065
  6. EXELON [Concomitant]
     Active Substance: RIVASTIGMINE TARTRATE
     Indication: DEMENTIA ALZHEIMER^S TYPE
     Route: 065
  7. ROYAL JELLY [Concomitant]
     Active Substance: ROYAL JELLY
     Route: 065

REACTIONS (15)
  - Speech disorder [Unknown]
  - Dehydration [Unknown]
  - Dementia Alzheimer^s type [Unknown]
  - Headache [Unknown]
  - Hallucination [Unknown]
  - Back pain [Unknown]
  - Arthralgia [Unknown]
  - Aggression [Unknown]
  - Eating disorder [Unknown]
  - Chills [Unknown]
  - Gait disturbance [Unknown]
  - Myalgia [Unknown]
  - Confusional state [Unknown]
  - Malaise [Unknown]
  - Urinary tract infection [Unknown]

NARRATIVE: CASE EVENT DATE: 201512
